FAERS Safety Report 11993094 (Version 1)
Quarter: 2016Q1

REPORT INFORMATION
  Report Type: Spontaneous
  Country: US (occurrence: None)
  Receive Date: 20160202
  Receipt Date: 20160202
  Transmission Date: 20160526
  Serious: Yes (Life-Threatening, Hospitalization, Disabling)
  Sender: FDA-Public Use
  Company Number: None

PATIENT
  Age: 62 Year
  Sex: Female
  Weight: 54.89 kg

DRUGS (5)
  1. PROBIOTICS [Concomitant]
     Active Substance: PROBIOTICS NOS
  2. AMBIEN [Concomitant]
     Active Substance: ZOLPIDEM TARTRATE
  3. CLINDAMYCINN 150 MG RANBAXY [Suspect]
     Active Substance: CLINDAMYCIN PHOSPHATE
     Indication: ENDODONTIC PROCEDURE
     Dosage: 1 PILL, FOUR TIMES DAILY, TAKEN BY MOUTH
     Dates: start: 20150917, end: 20151005
  4. X. BOULARDII [Concomitant]
  5. CLINDAMYCINN 150 MG RANBAXY [Suspect]
     Active Substance: CLINDAMYCIN PHOSPHATE
     Indication: TOOTH INFECTION
     Dosage: 1 PILL, FOUR TIMES DAILY, TAKEN BY MOUTH
     Dates: start: 20150917, end: 20151005

REACTIONS (3)
  - Tinnitus [None]
  - Nightmare [None]
  - Clostridium difficile infection [None]

NARRATIVE: CASE EVENT DATE: 20151016
